FAERS Safety Report 22621240 (Version 6)
Quarter: 2023Q4

REPORT INFORMATION
  Report Type: Report from Study
  Country: CN (occurrence: CN)
  Receive Date: 20230620
  Receipt Date: 20231031
  Transmission Date: 20240110
  Serious: Yes (Hospitalization)
  Sender: FDA-Public Use
  Company Number: CN-JNJFOC-20230629557

PATIENT
  Age: 28 Year
  Sex: Male
  Weight: 81.5 kg

DRUGS (2)
  1. USTEKINUMAB [Suspect]
     Active Substance: USTEKINUMAB
     Indication: Crohn^s disease
     Dosage: 200 MG/ 90 MG
     Route: 058
     Dates: start: 20220830, end: 20230608
  2. USTEKINUMAB [Suspect]
     Active Substance: USTEKINUMAB
     Dosage: WEEK 40
     Route: 058
     Dates: start: 20230608, end: 20230608

REACTIONS (1)
  - Intestinal obstruction [Recovering/Resolving]

NARRATIVE: CASE EVENT DATE: 20230608
